FAERS Safety Report 8829253 (Version 2)
Quarter: 2012Q4

REPORT INFORMATION
  Report Type: Spontaneous
  Country: GB (occurrence: None)
  Receive Date: 20121004
  Receipt Date: 20121016
  Transmission Date: 20130627
  Serious: Yes (Life-Threatening, Hospitalization)
  Sender: FDA-Public Use
  Company Number: GER/UKI/12/0026027

PATIENT
  Age: 21 Year
  Sex: Female
  Weight: 54 kg

DRUGS (14)
  1. SERTRALINE [Suspect]
     Indication: INTENTIONAL OVERDOSE
     Route: 048
     Dates: start: 20120829, end: 20120829
  2. SERTRALINE [Suspect]
     Indication: DELIBERATE SELF-HARM
     Route: 048
     Dates: start: 20120829, end: 20120829
  3. AMITRIPTYLINE [Suspect]
     Indication: INTENTIONAL OVERDOSE
     Route: 048
     Dates: start: 20120829, end: 20120829
  4. AMITRIPTYLINE [Suspect]
     Indication: DELIBERATE SELF-HARM
     Route: 048
     Dates: start: 20120829, end: 20120829
  5. CO-CODAMOL [Suspect]
     Indication: INTENTIONAL OVERDOSE
     Route: 048
     Dates: start: 20120829, end: 20120829
  6. CO-CODAMOL [Suspect]
     Indication: DELIBERATE SELF-HARM
     Route: 048
     Dates: start: 20120829, end: 20120829
  7. CODEINE [Suspect]
     Indication: INTENTIONAL OVERDOSE
     Route: 048
     Dates: start: 20120829, end: 20120829
  8. CODEINE [Suspect]
     Indication: DELIBERATE SELF-HARM
     Route: 048
     Dates: start: 20120829, end: 20120829
  9. CODEINE [Suspect]
     Indication: INTENTIONAL OVERDOSE
     Route: 048
     Dates: start: 20120829, end: 20120829
  10. CODEINE [Suspect]
     Indication: DELIBERATE SELF-HARM
     Route: 048
     Dates: start: 20120829, end: 20120829
  11. DIAZEPAM [Suspect]
     Indication: INTENTIONAL OVERDOSE
     Route: 048
     Dates: start: 20120829, end: 20120829
  12. DIAZEPAM [Suspect]
     Indication: DELIBERATE SELF-HARM
     Route: 048
     Dates: start: 20120829, end: 20120829
  13. IBUPROFEN [Suspect]
     Indication: INTENTIONAL OVERDOSE
     Route: 048
     Dates: start: 20120829, end: 20120829
  14. IBUPROFEN [Suspect]
     Indication: DELIBERATE SELF-HARM
     Route: 048
     Dates: start: 20120829, end: 20120829

REACTIONS (10)
  - Amylase increased [None]
  - Aspartate aminotransferase increased [None]
  - Blood lactate dehydrogenase increased [None]
  - Aggression [None]
  - Somnolence [None]
  - Coma scale abnormal [None]
  - Respiratory depression [None]
  - Abdominal pain upper [None]
  - Stubbornness [None]
  - Intentional overdose [None]
